FAERS Safety Report 19064728 (Version 6)
Quarter: 2025Q3

REPORT INFORMATION
  Report Type: Spontaneous
  Country: CA (occurrence: CA)
  Receive Date: 20210326
  Receipt Date: 20250714
  Transmission Date: 20251021
  Serious: Yes (Other)
  Sender: PFIZER
  Company Number: CA-TAKEDA-2021TUS017891

PATIENT
  Sex: Female

DRUGS (12)
  1. PANTOPRAZOLE MAGNESIUM [Suspect]
     Active Substance: PANTOPRAZOLE MAGNESIUM
  2. AZITHROMYCIN [Suspect]
     Active Substance: AZITHROMYCIN
  3. LEVOFLOXACIN [Suspect]
     Active Substance: LEVOFLOXACIN
  4. ALVESCO [Suspect]
     Active Substance: CICLESONIDE
  5. CICLESONIDE [Suspect]
     Active Substance: CICLESONIDE
  6. AMOXICILLIN\CLAVULANATE POTASSIUM [Suspect]
     Active Substance: AMOXICILLIN\CLAVULANATE POTASSIUM
  7. PREDNISONE [Suspect]
     Active Substance: PREDNISONE
  8. FORMOTEROL FUMARATE\MOMETASONE FUROATE [Suspect]
     Active Substance: FORMOTEROL FUMARATE\MOMETASONE FUROATE
  9. NASONEX [Suspect]
     Active Substance: MOMETASONE FUROATE
  10. RUPATADINE FUMARATE [Suspect]
     Active Substance: RUPATADINE FUMARATE
  11. ALBUTEROL SULFATE [Suspect]
     Active Substance: ALBUTEROL SULFATE
  12. ALBUTEROL [Suspect]
     Active Substance: ALBUTEROL

REACTIONS (15)
  - Asthma [Unknown]
  - Full blood count abnormal [Unknown]
  - Chest discomfort [Unknown]
  - Cough [Unknown]
  - Dyspnoea [Unknown]
  - Nasal polyps [Unknown]
  - Obstructive airways disorder [Unknown]
  - Paranasal sinus inflammation [Unknown]
  - Productive cough [Unknown]
  - Respiratory tract infection [Unknown]
  - Sinusitis [Unknown]
  - Sputum purulent [Unknown]
  - Wheezing [Unknown]
  - Sleep disorder due to a general medical condition [Unknown]
  - Therapeutic product effect incomplete [Unknown]
